FAERS Safety Report 12747192 (Version 1)
Quarter: 2016Q3

REPORT INFORMATION
  Report Type: Spontaneous
  Country: US (occurrence: US)
  Receive Date: 20160915
  Receipt Date: 20160915
  Transmission Date: 20161109
  Serious: Yes (Other)
  Sender: FDA-Public Use
  Company Number: US-SAOL THERAPEUTICS-2016SAO00467

PATIENT
  Age: 58 Year
  Sex: Female
  Weight: 113.61 kg

DRUGS (3)
  1. BACLOFEN. [Suspect]
     Active Substance: BACLOFEN
     Indication: PAIN
  2. MORPHINE [Suspect]
     Active Substance: MORPHINE
     Dosage: 12.288 MG, \DAY
     Route: 037
  3. BACLOFEN. [Suspect]
     Active Substance: BACLOFEN
     Indication: PAIN
     Dosage: 294.91 ?G, \DAY
     Route: 037

REACTIONS (3)
  - Back pain [Unknown]
  - Off label use [Unknown]
  - Spinal fracture [Unknown]

NARRATIVE: CASE EVENT DATE: 20160824
